FAERS Safety Report 7245269-3 (Version None)
Quarter: 2011Q1

REPORT INFORMATION
  Report Type: 
  Country: None (occurrence: None)
  Receive Date: 20110126
  Receipt Date: 20110117
  Transmission Date: 20110831
  Serious: Yes (Hospitalization)
  Sender: FDA-Public Use
  Company Number: IT-BRISTOL-MYERS SQUIBB COMPANY-15480163

PATIENT
  Age: 63 Year
  Sex: Female

DRUGS (3)
  1. SOLOSA [Suspect]
     Indication: DIABETES MELLITUS
     Route: 048
     Dates: start: 20090101, end: 20101213
  2. GLUCOPHAGE [Suspect]
     Indication: DIABETES MELLITUS
     Dosage: 1000MG;STOPPED ON 13DEC2010 AND REINTRODUCED,4YEARS(DURATION)
     Route: 048
     Dates: start: 20070101
  3. APROVEL [Concomitant]
     Route: 048

REACTIONS (4)
  - PYELONEPHRITIS [None]
  - RENAL FAILURE ACUTE [None]
  - HYPOGLYCAEMIA [None]
  - DEHYDRATION [None]
